FAERS Safety Report 21210713 (Version 4)
Quarter: 2022Q4

REPORT INFORMATION
  Report Type: Report from Study
  Country: FR (occurrence: FR)
  Receive Date: 20220815
  Receipt Date: 20221031
  Transmission Date: 20230112
  Serious: Yes (Hospitalization, Other)
  Sender: FDA-Public Use
  Company Number: FR-BRISTOL-MYERS SQUIBB COMPANY-2022-078146

PATIENT
  Age: 61 Year
  Sex: Female
  Weight: 59.4 kg

DRUGS (8)
  1. LENALIDOMIDE [Suspect]
     Active Substance: LENALIDOMIDE
     Indication: Central nervous system lymphoma
     Dosage: EVERY CYCLE
     Route: 048
     Dates: start: 20220408, end: 20220717
  2. MABTHERA [Suspect]
     Active Substance: RITUXIMAB
     Indication: Central nervous system lymphoma
     Dosage: EVERY CYCLE
     Route: 042
     Dates: start: 20220408
  3. MABTHERA [Suspect]
     Active Substance: RITUXIMAB
     Route: 042
     Dates: start: 20220707
  4. METHOTREXATE [Suspect]
     Active Substance: METHOTREXATE
     Indication: Central nervous system lymphoma
     Dosage: EVERY CYCLE
     Route: 042
     Dates: start: 20220408
  5. METHOTREXATE [Suspect]
     Active Substance: METHOTREXATE
     Route: 042
     Dates: start: 20220707
  6. VINCRISTINE [Suspect]
     Active Substance: VINCRISTINE
     Indication: Central nervous system lymphoma
     Dosage: EVERY CYCLE
     Route: 042
     Dates: start: 20220408, end: 20220707
  7. PROCARBAZINE HYDROCHLORIDE [Suspect]
     Active Substance: PROCARBAZINE HYDROCHLORIDE
     Indication: Central nervous system lymphoma
     Dosage: EVERY CYCLE
     Route: 048
     Dates: start: 20220408, end: 20220713
  8. PREDNISONE [Suspect]
     Active Substance: PREDNISONE
     Indication: Central nervous system lymphoma
     Dosage: EVERY CYCLE
     Route: 048
     Dates: start: 20220408, end: 20220711

REACTIONS (1)
  - Stenotrophomonas infection [Recovered/Resolved with Sequelae]

NARRATIVE: CASE EVENT DATE: 20220718
